FAERS Safety Report 9114603 (Version 2)
Quarter: 2013Q1

REPORT INFORMATION
  Report Type: Spontaneous
  Country: JP (occurrence: JP)
  Receive Date: 20130208
  Receipt Date: 20130315
  Transmission Date: 20140127
  Serious: Yes (Other)
  Sender: FDA-Public Use
  Company Number: JP-CELGENEUS-087-21660-13020092

PATIENT
  Age: 62 Year
  Sex: Female
  Weight: 53 kg

DRUGS (7)
  1. ABRAXANE [Suspect]
     Indication: BREAST CANCER RECURRENT
     Dosage: 400 MILLIGRAM
     Route: 041
     Dates: start: 20121101, end: 20121122
  2. ABRAXANE [Suspect]
     Dosage: 400 MILLIGRAM
     Route: 041
     Dates: start: 20121122
  3. ABRAXANE [Suspect]
     Dosage: 400 MILLIGRAM
     Route: 041
     Dates: start: 20130117
  4. HERCEPTIN [Concomitant]
     Indication: BREAST CANCER RECURRENT
     Dosage: 300 MILLIGRAM
     Route: 041
     Dates: start: 20121101, end: 20121122
  5. DECADRON [Concomitant]
     Indication: PRODUCT USED FOR UNKNOWN INDICATION
     Dosage: 2 MILLIGRAM
     Route: 065
     Dates: start: 20121101, end: 20121122
  6. LONOXIN [Concomitant]
     Indication: PRODUCT USED FOR UNKNOWN INDICATION
     Route: 048
  7. MUCOSTA [Concomitant]
     Indication: PRODUCT USED FOR UNKNOWN INDICATION
     Route: 048

REACTIONS (1)
  - Liver function test abnormal [Recovering/Resolving]
